FAERS Safety Report 7969785-1 (Version None)
Quarter: 2011Q4

REPORT INFORMATION
  Report Type: 
  Country: None (occurrence: None)
  Receive Date: 20111212
  Receipt Date: 20111208
  Transmission Date: 20120403
  Serious: No
  Sender: FDA-Public Use
  Company Number: US-PFIZER INC-2011300912

PATIENT
  Sex: Male
  Weight: 78 kg

DRUGS (4)
  1. CELEBREX [Suspect]
     Indication: MYALGIA
     Dosage: UNK, DAILY
  2. NAPROXEN (ALEVE) [Concomitant]
     Dosage: UNK, DAILY
  3. CELEBREX [Suspect]
     Indication: ARTHRALGIA
  4. BC POWDER [Concomitant]
     Indication: PAIN
     Dosage: UNK, AS NEEDED

REACTIONS (1)
  - PRURITUS [None]
